FAERS Safety Report 25185846 (Version 2)
Quarter: 2025Q2

REPORT INFORMATION
  Report Type: Spontaneous
  Country: US (occurrence: US)
  Receive Date: 20250410
  Receipt Date: 20250420
  Transmission Date: 20250717
  Serious: Yes (Hospitalization)
  Sender: TEVA
  Company Number: US-TEVA-VS-3317556

PATIENT
  Age: 61 Year
  Sex: Female

DRUGS (1)
  1. FLUOROURACIL [Suspect]
     Active Substance: FLUOROURACIL
     Indication: Intestinal adenocarcinoma
     Route: 065

REACTIONS (7)
  - Cardiotoxicity [Recovered/Resolved]
  - Arteriosclerosis coronary artery [Recovered/Resolved]
  - Ventricular hypokinesia [Recovered/Resolved]
  - Prinzmetal angina [Recovered/Resolved]
  - Cardiomyopathy acute [Recovered/Resolved]
  - Ejection fraction decreased [Recovered/Resolved]
  - Electrocardiogram ST segment elevation [Recovered/Resolved]
